FAERS Safety Report 14948425 (Version 1)
Quarter: 2018Q2

REPORT INFORMATION
  Report Type: Spontaneous
  Country: US (occurrence: US)
  Receive Date: 20180529
  Receipt Date: 20180529
  Transmission Date: 20180711
  Serious: No
  Sender: FDA-Public Use
  Company Number: US-009507513-1805USA013236

PATIENT
  Age: 20 Year
  Sex: Female

DRUGS (3)
  1. ATORVASTATIN [Concomitant]
     Active Substance: ATORVASTATIN
     Indication: GLOMERULONEPHRITIS MEMBRANOUS
     Dosage: UNK
  2. PRINIVIL [Suspect]
     Active Substance: LISINOPRIL
     Indication: GLOMERULONEPHRITIS MEMBRANOUS
     Dosage: UNK
     Route: 048
  3. FUROSEMIDE. [Concomitant]
     Active Substance: FUROSEMIDE
     Indication: GLOMERULONEPHRITIS MEMBRANOUS
     Dosage: UNK

REACTIONS (1)
  - Product use in unapproved indication [Unknown]
